FAERS Safety Report 25075572 (Version 2)
Quarter: 2025Q1

REPORT INFORMATION
  Report Type: Spontaneous
  Country: US (occurrence: US)
  Receive Date: 20250313
  Receipt Date: 20250319
  Transmission Date: 20250408
  Serious: Yes (Death, Hospitalization)
  Sender: ELI LILLY AND COMPANY
  Company Number: US-ELI_LILLY_AND_COMPANY-US202503003230

PATIENT
  Sex: Male

DRUGS (1)
  1. MOUNJARO [Suspect]
     Active Substance: TIRZEPATIDE
     Indication: Glucose tolerance impaired
     Route: 065

REACTIONS (5)
  - Pulmonary embolism [Fatal]
  - Renal failure [Unknown]
  - Intestinal obstruction [Unknown]
  - Abscess intestinal [Unknown]
  - Off label use [Unknown]

NARRATIVE: CASE EVENT DATE: 20250218
